FAERS Safety Report 9689816 (Version 4)
Quarter: 2014Q1

REPORT INFORMATION
  Report Type: Spontaneous
  Country: JP (occurrence: JP)
  Receive Date: 20131115
  Receipt Date: 20140124
  Transmission Date: 20141002
  Serious: Yes (Death)
  Sender: FDA-Public Use
  Company Number: JP-BRISTOL-MYERS SQUIBB COMPANY-19810787

PATIENT
  Age: 64 Year
  Sex: Female
  Weight: 36.2 kg

DRUGS (10)
  1. ERBITUX SOLN FOR INF 5MG/ML [Suspect]
     Indication: TONGUE NEOPLASM MALIGNANT STAGE UNSPECIFIED
     Dosage: 17SEP2013:17SEP13:327 MG
     Route: 041
     Dates: start: 20130910, end: 20130917
  2. DEXART [Concomitant]
     Indication: PROPHYLAXIS
     Route: 042
     Dates: start: 20130910, end: 20130917
  3. POLARAMINE [Concomitant]
     Route: 041
     Dates: start: 20130910, end: 20130917
  4. LASIX [Concomitant]
     Indication: POLYURIA
  5. NICORANDIL [Concomitant]
     Indication: CARDIAC FAILURE
  6. URSODEOXYCHOLIC ACID [Concomitant]
     Indication: BILIARY CIRRHOSIS PRIMARY
     Route: 048
  7. FOSAMAC [Concomitant]
     Indication: OSTEOPOROSIS
     Route: 048
  8. CEPHARANTHIN [Concomitant]
     Indication: WHITE BLOOD CELL COUNT DECREASED
     Route: 048
  9. MINOPEN [Concomitant]
     Route: 048
     Dates: start: 20130910, end: 20130924
  10. HIRUDOID [Concomitant]
     Indication: PROPHYLAXIS
     Route: 061
     Dates: start: 20130910, end: 20130924

REACTIONS (4)
  - Pulmonary embolism [Fatal]
  - Lymphangiosis carcinomatosa [Fatal]
  - Cardiac failure acute [Fatal]
  - Stress cardiomyopathy [Fatal]
